FAERS Safety Report 6669086-8 (Version None)
Quarter: 2010Q2

REPORT INFORMATION
  Report Type: 
  Country: None (occurrence: None)
  Receive Date: 20100402
  Receipt Date: 20100324
  Transmission Date: 20101027
  Serious: Yes (Hospitalization, Other)
  Sender: FDA-Public Use
  Company Number: 233634J09USA

PATIENT
  Age: 51 Year
  Sex: Female
  Weight: 105 kg

DRUGS (9)
  1. REBIF [Suspect]
     Indication: MULTIPLE SCLEROSIS
     Dosage: 44 MCG, 3 IN 1 WEEKS, SUBCUATANEOUS 8.8 MCG, 3 IN 1 WEEKS, SUBCUTANEOUS
     Route: 058
     Dates: start: 20060220, end: 20090101
  2. REBIF [Suspect]
     Indication: MULTIPLE SCLEROSIS
     Dosage: 44 MCG, 3 IN 1 WEEKS, SUBCUATANEOUS 8.8 MCG, 3 IN 1 WEEKS, SUBCUTANEOUS
     Route: 058
     Dates: start: 20091001, end: 20100211
  3. REBIF [Suspect]
     Indication: MULTIPLE SCLEROSIS
     Dosage: 44 MCG, 3 IN 1 WEEKS, SUBCUATANEOUS 8.8 MCG, 3 IN 1 WEEKS, SUBCUTANEOUS
     Route: 058
     Dates: start: 20100301
  4. LEVOTHYROXINE SODIUM [Concomitant]
  5. VITAMIN D [Concomitant]
  6. METOPROLOL (METOPROLOL) [Concomitant]
  7. BENICAR HCT (BENICAR HCT) [Concomitant]
  8. CALCIUM (CALCIUM-SANDOZ /00009901/) [Concomitant]
  9. SIMVASTATIN [Concomitant]

REACTIONS (6)
  - ANKLE FRACTURE [None]
  - BREAST CANCER FEMALE [None]
  - CELLULITIS [None]
  - LYMPHADENOPATHY [None]
  - POST PROCEDURAL INFECTION [None]
  - SQUAMOUS CELL CARCINOMA [None]
